FAERS Safety Report 5810509-1 (Version None)
Quarter: 2008Q3

REPORT INFORMATION
  Report Type: 
  Country: None (occurrence: None)
  Receive Date: 20080715
  Receipt Date: 20080703
  Transmission Date: 20090109
  Serious: Yes (Hospitalization)
  Sender: FDA-Public Use
  Company Number: US-ELI_LILLY_AND_COMPANY-US200807000813

PATIENT
  Sex: Female

DRUGS (3)
  1. HUMALOG [Suspect]
  2. HUMULIN 70/30 [Suspect]
  3. TYLENOL /USA/ [Concomitant]
     Indication: PAIN

REACTIONS (2)
  - RENAL CANCER [None]
  - URETERIC CANCER [None]
